FAERS Safety Report 23124941 (Version 1)
Quarter: 2023Q4

REPORT INFORMATION
  Report Type: Spontaneous
  Country: CA (occurrence: CA)
  Receive Date: 20231030
  Receipt Date: 20231030
  Transmission Date: 20240110
  Serious: Yes (Other)
  Sender: FDA-Public Use
  Company Number: CA-FreseniusKabi-FK202317135

PATIENT
  Age: 79 Year
  Sex: Male

DRUGS (3)
  1. OXALIPLATIN [Suspect]
     Active Substance: OXALIPLATIN
     Indication: Product used for unknown indication
     Route: 041
  2. BENADRYL [Concomitant]
     Active Substance: DIPHENHYDRAMINE HYDROCHLORIDE
     Indication: Product used for unknown indication
  3. HYDROCORTISONE [Concomitant]
     Active Substance: HYDROCORTISONE
     Indication: Product used for unknown indication

REACTIONS (15)
  - Abdominal discomfort [Unknown]
  - Flushing [Unknown]
  - Dyspepsia [Unknown]
  - Fluid replacement [Unknown]
  - Hypotension [Unknown]
  - Nausea [Unknown]
  - Oxygen saturation decreased [Unknown]
  - Oxygen therapy [Unknown]
  - Radial pulse abnormal [Unknown]
  - Retching [Unknown]
  - Somnolence [Unknown]
  - Stridor [Unknown]
  - Unresponsive to stimuli [Unknown]
  - Urinary incontinence [Unknown]
  - Erythema [Unknown]
